FAERS Safety Report 14598004 (Version 1)
Quarter: 2018Q1

REPORT INFORMATION
  Report Type: Spontaneous
  Country: US (occurrence: US)
  Receive Date: 20180302
  Receipt Date: 20180302
  Transmission Date: 20180509
  Serious: No
  Sender: FDA-Public Use
  Company Number: None

PATIENT
  Age: 23 Year
  Sex: Female
  Weight: 64.41 kg

DRUGS (2)
  1. ATOMOXETINE 60MG [Suspect]
     Active Substance: ATOMOXETINE HYDROCHLORIDE
     Indication: ATTENTION DEFICIT/HYPERACTIVITY DISORDER
     Route: 048
     Dates: start: 201707, end: 201709
  2. ATOMOXETINE 60MG [Suspect]
     Active Substance: ATOMOXETINE HYDROCHLORIDE
     Indication: ATTENTION DEFICIT/HYPERACTIVITY DISORDER
     Route: 048
     Dates: start: 201710

REACTIONS (5)
  - Agitation [None]
  - Product substitution issue [None]
  - Disturbance in attention [None]
  - Sleep paralysis [None]
  - Anxiety [None]
